FAERS Safety Report 17953246 (Version 1)
Quarter: 2020Q2

REPORT INFORMATION
  Report Type: Spontaneous
  Country: CA (occurrence: CA)
  Receive Date: 20200627
  Receipt Date: 20200627
  Transmission Date: 20200714
  Serious: Yes (Other)
  Sender: FDA-Public Use
  Company Number: NVSC2020CA181934

PATIENT
  Age: 3 Year
  Sex: Male

DRUGS (1)
  1. CEFTRIAXONE SODIUM FOR INJECTION BP [Suspect]
     Active Substance: CEFTRIAXONE SODIUM
     Indication: APPENDICITIS PERFORATED
     Dosage: 875 MG, QD
     Route: 041

REACTIONS (1)
  - Cholelithiasis [Unknown]
